FAERS Safety Report 9932540 (Version 2)
Quarter: 2014Q1

REPORT INFORMATION
  Report Type: Report from Study
  Country: US (occurrence: US)
  Receive Date: 20140228
  Receipt Date: 20140228
  Transmission Date: 20141002
  Serious: No
  Sender: FDA-Public Use
  Company Number: US-ABBVIE-13P-163-1177649-00

PATIENT
  Sex: Male
  Weight: 88.08 kg

DRUGS (4)
  1. ANDROGEL [Suspect]
     Indication: BLOOD TESTOSTERONE DECREASED
     Route: 061
     Dates: start: 2013
  2. ANDROGEL [Suspect]
     Route: 061
     Dates: start: 2010, end: 2013
  3. ALPRAZOLAM [Concomitant]
     Indication: ANXIETY
     Route: 048
     Dates: start: 1993
  4. DEPAKOTE [Concomitant]
     Indication: BIPOLAR DISORDER
     Route: 048
     Dates: start: 2010

REACTIONS (2)
  - Therapeutic response unexpected [Not Recovered/Not Resolved]
  - Blood testosterone decreased [Recovered/Resolved]
